FAERS Safety Report 8062205-0 (Version None)
Quarter: 2012Q1

REPORT INFORMATION
  Report Type: 
  Country: None (occurrence: None)
  Receive Date: 20120123
  Receipt Date: 20120110
  Transmission Date: 20120608
  Serious: Yes (Hospitalization, Other)
  Sender: FDA-Public Use
  Company Number: US-BAYER-201030676NA

PATIENT
  Age: 65 Year
  Sex: Male
  Weight: 70 kg

DRUGS (3)
  1. ALLEGRA-D [FEXOFENADINE HYDROCHLORIDE,PSEUDOEPHEDRINE] [Concomitant]
     Dosage: 1 TABLET DAILY
     Route: 048
  2. SORAFENIB (RAF KINASE INHIBITOR) [Suspect]
     Indication: MYELODYSPLASTIC SYNDROME
     Route: 048
     Dates: start: 20100723, end: 20100811
  3. PRILOSEC [Concomitant]
     Dosage: OTC 1 TABLET DAILY
     Route: 048
     Dates: start: 20100723

REACTIONS (2)
  - FEBRILE NEUTROPENIA [None]
  - MYOSITIS [None]
